FAERS Safety Report 19932665 (Version 2)
Quarter: 2021Q4

REPORT INFORMATION
  Report Type: Spontaneous
  Country: ES (occurrence: ES)
  Receive Date: 20211008
  Receipt Date: 20211021
  Transmission Date: 20220303
  Serious: Yes (Hospitalization, Other)
  Sender: FDA-Public Use
  Company Number: ES-SA-SAC20211006000696

PATIENT
  Age: 78 Year
  Sex: Female
  Weight: 63 kg

DRUGS (1)
  1. LANTUS SOLOSTAR [Suspect]
     Active Substance: INSULIN GLARGINE
     Indication: Type 2 diabetes mellitus
     Dosage: UNK
     Route: 058
     Dates: start: 2020

REACTIONS (17)
  - Fall [Unknown]
  - Polymyalgia rheumatica [Unknown]
  - Myocardial infarction [Recovering/Resolving]
  - Cataract [Recovering/Resolving]
  - Visual impairment [Recovering/Resolving]
  - Movement disorder [Unknown]
  - Cognitive disorder [Not Recovered/Not Resolved]
  - Dependent personality disorder [Not Recovered/Not Resolved]
  - Osteoarthritis [Unknown]
  - Memory impairment [Unknown]
  - Chest pain [Recovering/Resolving]
  - Asthenia [Unknown]
  - Illness [Recovering/Resolving]
  - Feeling abnormal [Recovering/Resolving]
  - Renal surgery [Unknown]
  - Hyperglycaemia [Recovering/Resolving]
  - Product dose omission in error [Unknown]
